FAERS Safety Report 22399112 (Version 1)
Quarter: 2023Q2

REPORT INFORMATION
  Report Type: Report from Study
  Country: MX (occurrence: MX)
  Receive Date: 20230602
  Receipt Date: 20230602
  Transmission Date: 20230721
  Serious: Yes (Other)
  Sender: FDA-Public Use
  Company Number: MX-AMGEN-MEXSL2023090589

PATIENT
  Age: 78 Year
  Sex: Male
  Weight: 75 kg

DRUGS (1)
  1. PROLIA [Suspect]
     Active Substance: DENOSUMAB
     Indication: Bone demineralisation
     Dosage: 60 MILLIGRAM, QMO
     Route: 058
     Dates: start: 2021

REACTIONS (4)
  - Exostosis of jaw [Unknown]
  - Dental caries [Unknown]
  - Tooth loss [Unknown]
  - Off label use [Unknown]

NARRATIVE: CASE EVENT DATE: 20210101
